FAERS Safety Report 6212324-6 (Version None)
Quarter: 2009Q2

REPORT INFORMATION
  Report Type: 
  Country: None (occurrence: None)
  Receive Date: 20090529
  Receipt Date: 20090514
  Transmission Date: 20091009
  Serious: Yes (Hospitalization)
  Sender: FDA-Public Use
  Company Number: 230192K09CAN

PATIENT
  Age: 55 Year
  Sex: Female

DRUGS (9)
  1. REBIF [Suspect]
     Indication: RELAPSING-REMITTING MULTIPLE SCLEROSIS
     Dosage: 44 MCG, 3 IN 1 WEEKS, SUBCUTANEOUS; 22 MCG, 3 IN 1 WEEKS, SUBCUTANEOUS
     Route: 058
     Dates: start: 20060825, end: 20070101
  2. REBIF [Suspect]
     Indication: RELAPSING-REMITTING MULTIPLE SCLEROSIS
     Dosage: 44 MCG, 3 IN 1 WEEKS, SUBCUTANEOUS; 22 MCG, 3 IN 1 WEEKS, SUBCUTANEOUS
     Route: 058
     Dates: start: 20070101, end: 20090101
  3. ASPIRIN [Concomitant]
  4. MIRTAZAPINE [Concomitant]
  5. ALENDRONATE SODIUM [Concomitant]
  6. OMEPRAZOLE [Concomitant]
  7. ZOPICLONE (ZOPICLONE) [Concomitant]
  8. VITAMIN D [Concomitant]
  9. CALCIUM (CALCIUM-SANDOZ /00009901/) [Concomitant]

REACTIONS (22)
  - ALOPECIA [None]
  - ARTHRALGIA [None]
  - BACK PAIN [None]
  - BLOOD PRESSURE DIASTOLIC INCREASED [None]
  - CLAUSTROPHOBIA [None]
  - COGNITIVE DISORDER [None]
  - HYPOAESTHESIA [None]
  - INCONTINENCE [None]
  - INFLUENZA LIKE ILLNESS [None]
  - IRRITABILITY [None]
  - MIGRAINE [None]
  - NAUSEA [None]
  - OROPHARYNGEAL PAIN [None]
  - PAIN IN EXTREMITY [None]
  - PERONEAL NERVE PALSY [None]
  - PHOTOPHOBIA [None]
  - URINARY TRACT INFECTION [None]
  - VASCULITIS CEREBRAL [None]
  - VOMITING [None]
  - WEIGHT BEARING DIFFICULTY [None]
  - WEIGHT INCREASED [None]
  - WHITE BLOOD CELL COUNT DECREASED [None]
